FAERS Safety Report 20093856 (Version 1)
Quarter: 2021Q4

REPORT INFORMATION
  Report Type: Spontaneous
  Country: FR (occurrence: FR)
  Receive Date: 20211121
  Receipt Date: 20211121
  Transmission Date: 20220304
  Serious: Yes (Hospitalization, Congenital Anomaly, Other)
  Sender: FDA-Public Use
  Company Number: FR-ABBVIE-21K-056-4165535-00

PATIENT
  Age: 7 Day
  Sex: Male
  Weight: 2.98 kg

DRUGS (1)
  1. VALPROATE SODIUM [Suspect]
     Active Substance: VALPROATE SODIUM
     Indication: Maternal exposure timing unspecified
     Route: 064

REACTIONS (61)
  - Autism spectrum disorder [Unknown]
  - Cyanosis [Unknown]
  - Anxiety [Unknown]
  - Dependent personality disorder [Unknown]
  - Behaviour disorder [Unknown]
  - Chorea [Unknown]
  - Communication disorder [Unknown]
  - Dyspraxia [Unknown]
  - Affect lability [Unknown]
  - Heterophoria [Unknown]
  - Strabismus [Unknown]
  - Dysmorphism [Unknown]
  - Fatigue [Unknown]
  - Femoral anteversion [Unknown]
  - Fine motor skill dysfunction [Unknown]
  - Congenital hand malformation [Unknown]
  - Hypotonia [Unknown]
  - Cyanosis [Unknown]
  - Neonatal aspiration [Unknown]
  - Speech disorder developmental [Unknown]
  - Hand deformity [Unknown]
  - Neonatal respiratory distress [Unknown]
  - Hyperacusis [Unknown]
  - Autism spectrum disorder [Unknown]
  - Hypertelorism [Unknown]
  - Hypermobility syndrome [Unknown]
  - Attention deficit hyperactivity disorder [Unknown]
  - Cognitive disorder [Unknown]
  - Ear malformation [Unknown]
  - Social avoidant behaviour [Unknown]
  - Dependent personality disorder [Unknown]
  - Language disorder [Unknown]
  - Psychomotor skills impaired [Unknown]
  - Stereotypy [Unknown]
  - Decreased eye contact [Unknown]
  - Finger deformity [Unknown]
  - Social avoidant behaviour [Unknown]
  - Echolalia [Unknown]
  - Agitation [Unknown]
  - Prognathism [Unknown]
  - Dystonia [Unknown]
  - Ligament laxity [Unknown]
  - Autism spectrum disorder [Unknown]
  - Haemophobia [Unknown]
  - Illusion [Unknown]
  - Fine motor skill dysfunction [Unknown]
  - Oculogyric crisis [Unknown]
  - Cognitive linguistic deficit [Unknown]
  - Developmental coordination disorder [Unknown]
  - Dependent personality disorder [Unknown]
  - Disorientation [Unknown]
  - Oromandibular dystonia [Unknown]
  - Disturbance in social behaviour [Unknown]
  - Poverty of thought content [Unknown]
  - Impaired reasoning [Unknown]
  - Adjustment disorder [Unknown]
  - Pharyngitis [Unknown]
  - Rhinitis [Unknown]
  - Nasopharyngitis [Unknown]
  - Cough [Unknown]
  - Foetal exposure during pregnancy [Unknown]

NARRATIVE: CASE EVENT DATE: 20020109
